FAERS Safety Report 20892581 (Version 1)
Quarter: 2022Q2

REPORT INFORMATION
  Report Type: Report from Study
  Country: AU (occurrence: AU)
  Receive Date: 20220531
  Receipt Date: 20220531
  Transmission Date: 20220720
  Serious: Yes (Life-Threatening, Hospitalization, Other)
  Sender: FDA-Public Use
  Company Number: AU-CELGENE-AUS-20220300508

PATIENT
  Sex: Female
  Weight: 68 kg

DRUGS (16)
  1. AZACITIDINE [Suspect]
     Active Substance: AZACITIDINE
     Indication: Myelodysplastic syndrome
     Dosage: 128 MILLIGRAM
     Route: 042
     Dates: start: 20220110
  2. AZACITIDINE [Suspect]
     Active Substance: AZACITIDINE
     Dosage: 128 MILLIGRAM
     Route: 042
     Dates: start: 20220118, end: 20220118
  3. BGB-11417 [Suspect]
     Active Substance: BGB-11417
     Indication: Myelodysplastic syndrome
     Dosage: 5 MILLIGRAM
     Route: 048
     Dates: start: 20220110
  4. BGB-11417 [Suspect]
     Active Substance: BGB-11417
     Dosage: 40 MILLIGRAM
     Route: 048
     Dates: start: 20220119, end: 20220119
  5. ATACAND [Concomitant]
     Active Substance: CANDESARTAN CILEXETIL
     Indication: Hypertension
     Dosage: FREQUENCY TEXT: NOT PROVIDED
     Route: 048
     Dates: start: 2018, end: 20220114
  6. JADENU [Concomitant]
     Active Substance: DEFERASIROX
     Indication: Iron overload
     Dosage: FREQUENCY TEXT: NOT PROVIDED
     Route: 048
     Dates: start: 202109, end: 20211214
  7. PROLIA [Concomitant]
     Active Substance: DENOSUMAB
     Indication: Osteoporosis
     Dosage: FREQUENCY TEXT: NOT PROVIDED
     Route: 058
     Dates: start: 2019
  8. PANADOL [Concomitant]
     Active Substance: ACETAMINOPHEN
     Indication: Pain
     Dosage: FREQUENCY TEXT: NOT PROVIDED
     Route: 048
     Dates: start: 201811
  9. MODERNA COVID-19 VACCINE [Concomitant]
     Active Substance: ELASOMERAN
     Indication: Immunisation
     Route: 030
     Dates: start: 20211229, end: 20211229
  10. GRANISETRON [Concomitant]
     Active Substance: GRANISETRON
     Indication: Product used for unknown indication
     Dosage: FREQUENCY TEXT: NOT PROVIDED
     Route: 065
     Dates: start: 20220110
  11. METOCLOPRAMIDE [Concomitant]
     Active Substance: METOCLOPRAMIDE
     Indication: Product used for unknown indication
     Dosage: FREQUENCY TEXT: NOT PROVIDED
     Route: 065
     Dates: start: 20220110
  12. AMLODIPINE [Concomitant]
     Active Substance: AMLODIPINE BESYLATE
     Indication: Product used for unknown indication
     Dosage: FREQUENCY TEXT: NOT PROVIDED
     Route: 065
     Dates: start: 20220114
  13. TRIMETHOPRIM [Concomitant]
     Active Substance: TRIMETHOPRIM
     Indication: Product used for unknown indication
     Dosage: FREQUENCY TEXT: NOT PROVIDED
     Route: 065
     Dates: start: 20211129
  14. VITAMIN B12 [Concomitant]
     Active Substance: CYANOCOBALAMIN
     Indication: Product used for unknown indication
     Dosage: FREQUENCY TEXT: NOT PROVIDED
     Route: 065
  15. CHOLECALCIFEROL [Concomitant]
     Active Substance: CHOLECALCIFEROL
     Indication: Product used for unknown indication
     Dosage: FREQUENCY TEXT: NOT PROVIDED
     Route: 065
     Dates: start: 2015
  16. MODERNA COVID-19 VACCINE [Concomitant]
     Active Substance: ELASOMERAN
     Indication: Product used for unknown indication
     Dosage: FREQUENCY TEXT: NOT PROVIDED
     Route: 065
     Dates: start: 20211229, end: 20211229

REACTIONS (1)
  - Neutropenic sepsis [Not Recovered/Not Resolved]

NARRATIVE: CASE EVENT DATE: 20220123
